FAERS Safety Report 8620254-5 (Version None)
Quarter: 2012Q3

REPORT INFORMATION
  Report Type: 
  Country: None (occurrence: None)
  Receive Date: 20120824
  Receipt Date: 20120817
  Transmission Date: 20120928
  Serious: Yes (Hospitalization)
  Sender: FDA-Public Use
  Company Number: US-B.I. PHARMACEUTICALS,INC./RIDGEFIELD-2012-BP-17781BP

PATIENT
  Sex: Male

DRUGS (6)
  1. SOTALOL HCL [Concomitant]
     Indication: HYPERTENSION
     Route: 048
     Dates: start: 20120501, end: 20120811
  2. SOTALOL HCL [Concomitant]
     Indication: ATRIAL FIBRILLATION
  3. SPIRIVA [Suspect]
     Indication: CHRONIC OBSTRUCTIVE PULMONARY DISEASE
     Dosage: 18 MCG
     Route: 055
     Dates: start: 20120501
  4. LASIX [Concomitant]
     Indication: HYPERTENSION
     Dates: start: 20120501
  5. PRADAXA [Suspect]
     Indication: ATRIAL FIBRILLATION
     Dosage: 300 MG
     Route: 048
     Dates: start: 20120501
  6. XOPENEX [Concomitant]
     Indication: CHRONIC OBSTRUCTIVE PULMONARY DISEASE
     Route: 055
     Dates: start: 20120501

REACTIONS (5)
  - CARDIAC FAILURE CONGESTIVE [None]
  - ATRIAL FIBRILLATION [None]
  - TOOTH INJURY [None]
  - TOOTHACHE [None]
  - ASTHMA [None]
